FAERS Safety Report 9475511 (Version 1)
Quarter: 2013Q3

REPORT INFORMATION
  Report Type: Spontaneous
  Country: CN (occurrence: CN)
  Receive Date: 20130826
  Receipt Date: 20130826
  Transmission Date: 20140515
  Serious: Yes (Other)
  Sender: FDA-Public Use
  Company Number: CN-BRISTOL-MYERS SQUIBB COMPANY-19199116

PATIENT
  Age: 72 Year
  Sex: Female
  Weight: 72 kg

DRUGS (2)
  1. METFORMIN HCL TABS [Suspect]
     Indication: DIABETES MELLITUS
     Route: 048
     Dates: start: 20111028, end: 20111216
  2. ATORVASTATIN CALCIUM [Suspect]
     Indication: CORONARY ARTERY DISEASE
     Route: 048
     Dates: start: 20111028, end: 20111216

REACTIONS (1)
  - Transaminases increased [Not Recovered/Not Resolved]
